FAERS Safety Report 20885501 (Version 2)
Quarter: 2023Q1

REPORT INFORMATION
  Report Type: Spontaneous
  Country: None (occurrence: US)
  Receive Date: 20220527
  Receipt Date: 20230308
  Transmission Date: 20230418
  Serious: No
  Sender: FDA-Public Use
  Company Number: US-Imprimis NJOF-2129280

PATIENT

DRUGS (1)
  1. DEX-MOXI PF [Suspect]
     Active Substance: DEXAMETHASONE SODIUM PHOSPHATE\MOXIFLOXACIN HYDROCHLORIDE MONOHYDRATE
     Route: 047

REACTIONS (2)
  - Pigmentation disorder [Unknown]
  - Corneal oedema [Recovered/Resolved]
